FAERS Safety Report 7682509-0 (Version None)
Quarter: 2011Q3

REPORT INFORMATION
  Report Type: 
  Country: None (occurrence: None)
  Receive Date: 20110815
  Receipt Date: 20110801
  Transmission Date: 20111222
  Serious: Yes (Other)
  Sender: FDA-Public Use
  Company Number: PHHY2011BR70271

PATIENT
  Sex: Female

DRUGS (1)
  1. EXFORGE [Suspect]
     Indication: HYPERTENSION
     Dosage: 160 MG VALS AND 5 MG AMLO, 1 TABLET DAILY
     Route: 048

REACTIONS (2)
  - CHOLELITHIASIS [None]
  - ABDOMINAL PAIN [None]
